FAERS Safety Report 16938433 (Version 1)
Quarter: 2019Q4

REPORT INFORMATION
  Report Type: Spontaneous
  Country: US (occurrence: US)
  Receive Date: 20191019
  Receipt Date: 20191019
  Transmission Date: 20200122
  Serious: No
  Sender: FDA-Public Use
  Company Number: US-TEVA-2019-US-1126042

PATIENT
  Age: 76 Year
  Sex: Female

DRUGS (1)
  1. ATENOLOL TEVA [Suspect]
     Active Substance: ATENOLOL
     Route: 065

REACTIONS (3)
  - Fatigue [Unknown]
  - Dyspnoea [Unknown]
  - Therapeutic product effect increased [Unknown]
